FAERS Safety Report 4831536-7 (Version None)
Quarter: 2005Q4

REPORT INFORMATION
  Report Type: 
  Country: None (occurrence: None)
  Receive Date: 20051116
  Receipt Date: 20051107
  Transmission Date: 20060501
  Serious: Yes (Hospitalization)
  Sender: FDA-Public Use
  Company Number: CIP05002588

PATIENT
  Age: 71 Year
  Sex: Female

DRUGS (10)
  1. ACTOS [Suspect]
     Dosage: ONCE WEEKLY, ORAL
     Route: 048
  2. TORSEMIDE (TORASEMIDE) [Concomitant]
  3. SPIRONOLACTONE [Concomitant]
  4. ZAROXOLYN [Concomitant]
  5. LISINOPRIL (LISINOPRILL) [Concomitant]
  6. LIPITOR [Concomitant]
  7. AMARYL [Concomitant]
  8. INSULIN [Concomitant]
  9. LORATADINE [Concomitant]
  10. BECONASE AQUA (BECLOMETASONE DIPROPIONATE) [Concomitant]

REACTIONS (6)
  - ABDOMINAL PAIN UPPER [None]
  - DYSPEPSIA [None]
  - FEELING ABNORMAL [None]
  - GASTRIC POLYPS [None]
  - GASTRITIS EROSIVE [None]
  - NAUSEA [None]
